FAERS Safety Report 10171418 (Version 1)
Quarter: 2014Q2

REPORT INFORMATION
  Report Type: Report from Study
  Country: FR (occurrence: None)
  Receive Date: 20140512
  Receipt Date: 20140512
  Transmission Date: 20141212
  Serious: Yes (Hospitalization)
  Sender: FDA-Public Use
  Company Number: FR-015609

PATIENT
  Age: 35 Year
  Sex: Female
  Weight: 60 kg

DRUGS (3)
  1. MENOPUR [Suspect]
     Indication: IN VITRO FERTILISATION
     Route: 058
     Dates: start: 20131115, end: 20131123
  2. OVITRELLE [Suspect]
     Indication: IN VITRO FERTILISATION
     Route: 058
     Dates: start: 20131124, end: 20131124
  3. CETROTIDE [Concomitant]

REACTIONS (3)
  - Abdominal pain [None]
  - Nausea [None]
  - Syncope [None]
